FAERS Safety Report 7211608-2 (Version None)
Quarter: 2010Q4

REPORT INFORMATION
  Report Type: 
  Country: None (occurrence: None)
  Receive Date: 20101228
  Receipt Date: 20101213
  Transmission Date: 20110411
  Serious: Yes (Other)
  Sender: FDA-Public Use
  Company Number: 012306

PATIENT
  Age: 17 Year
  Sex: Male

DRUGS (5)
  1. BUSULFEX [Suspect]
     Indication: STEM CELL TRANSPLANT
     Dosage: 16 MG/KG, DAILY DOSE,
  2. CYCLOPHOSPHAMIDE [Concomitant]
  3. CYCLOSPORINE [Concomitant]
  4. MTX (METHOXTREXATE SODIUM) [Concomitant]
  5. LEUKINE [Concomitant]

REACTIONS (5)
  - ACUTE GRAFT VERSUS HOST DISEASE IN SKIN [None]
  - ACUTE MYELOID LEUKAEMIA RECURRENT [None]
  - GRAFT VERSUS HOST DISEASE [None]
  - NO THERAPEUTIC RESPONSE [None]
  - STEM CELL TRANSPLANT [None]
